FAERS Safety Report 12374458 (Version 1)
Quarter: 2016Q2

REPORT INFORMATION
  Report Type: Spontaneous
  Country: US (occurrence: None)
  Receive Date: 20160516
  Receipt Date: 20160516
  Transmission Date: 20160815
  Serious: No
  Sender: FDA-Public Use
  Company Number: None

PATIENT
  Age: 14 Year
  Sex: Male

DRUGS (9)
  1. TOBI [Concomitant]
     Active Substance: TOBRAMYCIN
  2. ZYRTEC [Concomitant]
     Active Substance: CETIRIZINE HYDROCHLORIDE
  3. LANTUS [Concomitant]
     Active Substance: INSULIN GLARGINE
  4. ORKAMBI [Suspect]
     Active Substance: IVACAFTOR\LUMACAFTOR
     Indication: CYSTIC FIBROSIS
     Route: 048
     Dates: start: 20150723
  5. ZENEP [Concomitant]
  6. VITAMIN K [Concomitant]
     Active Substance: PHYTONADIONE
  7. SEREVENT DISKUS [Concomitant]
     Active Substance: SALMETEROL XINAFOATE
  8. PULMOZYME [Suspect]
     Active Substance: DORNASE ALFA
     Indication: CYSTIC FIBROSIS
     Route: 055
     Dates: start: 20150611
  9. COLISTEMETHATE [Concomitant]

REACTIONS (3)
  - Asthma [None]
  - Chest pain [None]
  - Exercise lack of [None]

NARRATIVE: CASE EVENT DATE: 201604
